FAERS Safety Report 7532650-8 (Version None)
Quarter: 2011Q2

REPORT INFORMATION
  Report Type: 
  Country: None (occurrence: None)
  Receive Date: 20110608
  Receipt Date: 20110531
  Transmission Date: 20111010
  Serious: Yes (Other)
  Sender: FDA-Public Use
  Company Number: JP-CEPHALON-2011002866

PATIENT
  Age: 67 Year
  Sex: Male

DRUGS (2)
  1. BENDAMUSTINE HCL [Suspect]
     Indication: B-CELL LYMPHOMA
     Route: 042
     Dates: start: 20110406, end: 20110407
  2. BENDAMUSTINE HCL [Suspect]
     Route: 042
     Dates: start: 20110427, end: 20110428

REACTIONS (1)
  - APLASTIC ANAEMIA [None]
